FAERS Safety Report 5085539-0 (Version None)
Quarter: 2006Q3

REPORT INFORMATION
  Report Type: 
  Country: None (occurrence: None)
  Receive Date: 20060816
  Receipt Date: 20060808
  Transmission Date: 20061208
  Serious: Yes (Hospitalization)
  Sender: FDA-Public Use
  Company Number: SPV1-2006-00111

PATIENT
  Age: 80 Year
  Sex: Female
  Weight: 100 kg

DRUGS (7)
  1. ANAGRELIDE HYDROCHLORIDE 0.5MG(ANAGRELIDE HYDROCHLORIDE) CAPSULE [Suspect]
     Indication: ESSENTIAL THROMBOCYTHAEMIA
     Dosage: 0.5 MG, 2X/DAY; BID, ORAL
     Route: 048
     Dates: start: 20060314, end: 20060623
  2. HYDROXYUREA [Concomitant]
  3. NIFEDIPINE (NIFEDIPINE) CAPSULE [Concomitant]
  4. CAPTOPRIL [Concomitant]
  5. METOPROLOL (METOPROLOL) [Concomitant]
  6. HCT (HYDROCHLOROTHIAZIDE) [Concomitant]
  7. METFORMIN [Concomitant]

REACTIONS (10)
  - AORTIC VALVE SCLEROSIS [None]
  - CEREBROVASCULAR ACCIDENT [None]
  - COORDINATION ABNORMAL [None]
  - DEHYDRATION [None]
  - DIZZINESS [None]
  - HALLUCINATION, VISUAL [None]
  - HEADACHE [None]
  - HYPERTENSION [None]
  - LEUKOPENIA [None]
  - URINARY TRACT INFECTION [None]
